FAERS Safety Report 11211683 (Version 1)
Quarter: 2015Q2

REPORT INFORMATION
  Report Type: Spontaneous
  Country: GB (occurrence: GB)
  Receive Date: 20150623
  Receipt Date: 20150623
  Transmission Date: 20150821
  Serious: Yes (Other)
  Sender: FDA-Public Use
  Company Number: GB-ASTRAZENECA-2015SE57489

PATIENT
  Age: 51 Year
  Sex: Female
  Weight: 104 kg

DRUGS (2)
  1. CANDESARTAN CILEXETIL. [Suspect]
     Active Substance: CANDESARTAN CILEXETIL
     Indication: HYPERTENSION
     Route: 048
     Dates: start: 20150515, end: 20150524
  2. CANDESARTAN CILEXETIL. [Suspect]
     Active Substance: CANDESARTAN CILEXETIL
     Indication: HYPERTENSION
     Dosage: TEVA^S PRODUCT; 4 MG EVERY DAY
     Route: 048
     Dates: start: 20150515, end: 20150524

REACTIONS (17)
  - Oedema peripheral [Recovering/Resolving]
  - Syncope [Recovered/Resolved]
  - Arthralgia [Recovering/Resolving]
  - Crying [Recovered/Resolved]
  - Cough [Recovering/Resolving]
  - Muscular weakness [Recovering/Resolving]
  - Depression [Recovered/Resolved]
  - Palpitations [Recovering/Resolving]
  - Dyspnoea [Recovered/Resolved]
  - Eye pain [Recovered/Resolved]
  - Secretion discharge [Recovering/Resolving]
  - Nightmare [Recovered/Resolved]
  - Anxiety [Recovered/Resolved]
  - Blood pressure fluctuation [Recovered/Resolved]
  - Fear [Recovered/Resolved]
  - Agitation [Recovered/Resolved]
  - Muscle spasms [Recovered/Resolved]

NARRATIVE: CASE EVENT DATE: 20150517
